FAERS Safety Report 8807727 (Version 1)
Quarter: 2012Q4

REPORT INFORMATION
  Report Type: 
  Country: US (occurrence: US)
  Receive Date: 20120925
  Receipt Date: 20120925
  Transmission Date: 20130627
  Serious: No
  Sender: FDA-Public Use
  Company Number: US-BIOGENIDEC-2012BI038074

PATIENT
  Age: 46 Year
  Sex: Female

DRUGS (1)
  1. AVONEX [Suspect]
     Indication: MULTIPLE SCLEROSIS
     Route: 030
     Dates: start: 20120804

REACTIONS (4)
  - Pain in extremity [Unknown]
  - Musculoskeletal disorder [Recovered/Resolved]
  - Muscular weakness [Recovered/Resolved]
  - Muscle tightness [Not Recovered/Not Resolved]
